FAERS Safety Report 6296399-4 (Version None)
Quarter: 2009Q3

REPORT INFORMATION
  Report Type: 
  Country: None (occurrence: None)
  Receive Date: 20090804
  Receipt Date: 20090729
  Transmission Date: 20100115
  Serious: Yes (Disabling)
  Sender: FDA-Public Use
  Company Number: IT-JNJFOC-20090201187

PATIENT
  Age: 57 Year
  Sex: Female

DRUGS (3)
  1. TAVANIC [Suspect]
     Indication: INFLUENZA
     Dosage: 1 UNIT
     Route: 048
  2. TACHIPIRINA [Concomitant]
     Route: 065
  3. PLASIL [Concomitant]
     Route: 065

REACTIONS (4)
  - AGEUSIA [None]
  - ANOSMIA [None]
  - HYPOSMIA [None]
  - PAROSMIA [None]
